FAERS Safety Report 6114862-3 (Version None)
Quarter: 2009Q1

REPORT INFORMATION
  Report Type: 
  Country: None (occurrence: None)
  Receive Date: 20090313
  Receipt Date: 20090311
  Transmission Date: 20090719
  Serious: Yes (Other)
  Sender: FDA-Public Use
  Company Number: A0762972A

PATIENT
  Age: 41 Year
  Sex: Female

DRUGS (4)
  1. ALLI [Suspect]
     Route: 048
  2. MULTI-VITAMIN [Concomitant]
  3. PROZAC [Concomitant]
     Indication: HYSTERECTOMY
  4. MOTRIN [Concomitant]

REACTIONS (4)
  - GASTRIC INFECTION [None]
  - OESOPHAGEAL INFECTION [None]
  - PRECANCEROUS CELLS PRESENT [None]
  - RECTAL HAEMORRHAGE [None]
